FAERS Safety Report 8577503-1 (Version None)
Quarter: 2012Q3

REPORT INFORMATION
  Report Type: 
  Country: None (occurrence: None)
  Receive Date: 20120807
  Receipt Date: 20120731
  Transmission Date: 20120928
  Serious: Yes (Hospitalization)
  Sender: FDA-Public Use
  Company Number: GB-ROCHE-1095740

PATIENT
  Sex: Male

DRUGS (2)
  1. LEFLUNOMIDE [Concomitant]
  2. MABTHERA [Suspect]
     Indication: RHEUMATOID ARTHRITIS
     Dates: start: 20100804

REACTIONS (4)
  - VOMITING [None]
  - RENAL FAILURE ACUTE [None]
  - MALAISE [None]
  - DECREASED APPETITE [None]
